FAERS Safety Report 13763876 (Version 1)
Quarter: 2017Q3

REPORT INFORMATION
  Report Type: Spontaneous
  Country: US (occurrence: US)
  Receive Date: 20170718
  Receipt Date: 20170718
  Transmission Date: 20171127
  Serious: Yes (Other)
  Sender: FDA-Public Use
  Company Number: US-EXELA PHARMA SCIENCES, LLC-2017EXL00004

PATIENT
  Age: 57 Year
  Sex: Male

DRUGS (1)
  1. SODIUM NITROPRUSSIDE. [Suspect]
     Active Substance: SODIUM NITROPRUSSIDE
     Indication: HYPOTENSIVE ANAESTHESIA PROCEDURE

REACTIONS (2)
  - Basal ganglia infarction [Recovering/Resolving]
  - Encephalopathy [Recovering/Resolving]
